FAERS Safety Report 11759565 (Version 1)
Quarter: 2015Q4

REPORT INFORMATION
  Report Type: Spontaneous
  Country: US (occurrence: US)
  Receive Date: 20151120
  Receipt Date: 20151120
  Transmission Date: 20160304
  Serious: No
  Sender: FDA-Public Use
  Company Number: US-JNJFOC-20151008000

PATIENT
  Age: 77 Year
  Sex: Female
  Weight: 62.6 kg

DRUGS (3)
  1. WOMENS ROGAINE UNSCENTED [Suspect]
     Active Substance: MINOXIDIL
     Route: 061
  2. WOMENS ROGAINE UNSCENTED [Suspect]
     Active Substance: MINOXIDIL
     Indication: ALOPECIA
     Dosage: A CAPFUL
     Route: 061
     Dates: end: 20151007
  3. BIOTIN [Concomitant]
     Active Substance: BIOTIN
     Indication: NUTRITIONAL SUPPLEMENTATION
     Dosage: FOR YEARS
     Route: 065

REACTIONS (5)
  - Hair texture abnormal [Not Recovered/Not Resolved]
  - Frustration [Unknown]
  - Product formulation issue [Unknown]
  - Product quality issue [Unknown]
  - Overdose [Unknown]
